FAERS Safety Report 9462674 (Version 6)
Quarter: 2013Q4

REPORT INFORMATION
  Report Type: Report from Study
  Country: JP (occurrence: JP)
  Receive Date: 20130816
  Receipt Date: 20131023
  Transmission Date: 20140711
  Serious: Yes (Death, Life-Threatening, Hospitalization)
  Sender: FDA-Public Use
  Company Number: JP-AMGEN-JPNCT2013057713

PATIENT
  Age: 69 Year
  Sex: Female
  Weight: 61 kg

DRUGS (44)
  1. ROMIPLOSTIM - KHK [Suspect]
     Indication: IMMUNE THROMBOCYTOPENIC PURPURA
     Dosage: 75 MUG, QD
     Route: 058
     Dates: start: 20110617, end: 20120718
  2. ROMIPLOSTIM - KHK [Suspect]
     Dosage: 1 MUG/KG, QD
     Route: 058
     Dates: start: 20110617, end: 20110617
  3. ROMIPLOSTIM - KHK [Suspect]
     Dosage: 1 MUG/KG, QWK
     Route: 058
     Dates: start: 20110627, end: 20110711
  4. ROMIPLOSTIM - KHK [Suspect]
     Dosage: 1.5 MUG/KG, QWK
     Route: 058
     Dates: start: 20110718, end: 20110808
  5. ROMIPLOSTIM - KHK [Suspect]
     Dosage: 2 MUG/KG, QD
     Route: 058
     Dates: start: 20110812, end: 20110812
  6. ROMIPLOSTIM - KHK [Suspect]
     Dosage: 2.5 MUG/KG, QWK
     Dates: start: 20110822, end: 20110905
  7. ROMIPLOSTIM - KHK [Suspect]
     Dosage: 2 MUG/KG, QWK
     Route: 058
     Dates: start: 20110912, end: 20110926
  8. ROMIPLOSTIM - KHK [Suspect]
     Dosage: 2.5 MUG/KG, QD
     Route: 058
     Dates: start: 20111003, end: 20111003
  9. ROMIPLOSTIM - KHK [Suspect]
     Dosage: UNK, QD
     Route: 058
     Dates: start: 20111116, end: 20111116
  10. ROMIPLOSTIM - KHK [Suspect]
     Dosage: UNK, QD
     Route: 058
     Dates: start: 20120126, end: 20120126
  11. ROMIPLOSTIM - KHK [Suspect]
     Dosage: 50 MUG, UNK
     Route: 058
     Dates: start: 20120713, end: 20120713
  12. ROMIPLOSTIM - KHK [Suspect]
     Dosage: 75 MUG, UNK
     Route: 058
     Dates: start: 20120718, end: 20120718
  13. ARANESP [Concomitant]
     Indication: NEPHROGENIC ANAEMIA
     Dosage: 180 MUG, 1X/WEEK
     Route: 065
  14. PREDNISOLONE [Concomitant]
     Indication: IMMUNE THROMBOCYTOPENIC PURPURA
     Dosage: 7 MG, UNK
     Route: 048
     Dates: start: 20110613
  15. PREDNISOLONE [Concomitant]
     Dosage: 17.5 MG, UNK
     Route: 048
     Dates: start: 20110613, end: 20110630
  16. PREDNISOLONE [Concomitant]
     Dosage: 15 MG, UNK
     Route: 048
     Dates: start: 20110701, end: 20110710
  17. PREDNISOLONE [Concomitant]
     Dosage: 12.5 MG, UNK
     Route: 048
     Dates: start: 20110711, end: 20110731
  18. PREDNISOLONE [Concomitant]
     Dosage: 10 MG, UNK
     Route: 048
     Dates: start: 20110801, end: 20110821
  19. PREDNISOLONE [Concomitant]
     Dosage: 9 MG, UNK
     Route: 048
     Dates: start: 20110822, end: 20110904
  20. PREDNISOLONE [Concomitant]
     Dosage: 8 MG, UNK
     Route: 048
     Dates: start: 20110905, end: 20110925
  21. PREDNISOLONE [Concomitant]
     Dosage: 7 MG, UNK
     Route: 048
     Dates: start: 20110926
  22. MYSLEE [Concomitant]
     Indication: INSOMNIA
     Dosage: 10 MG, UNK
     Route: 048
  23. OMEPRAL [Concomitant]
     Indication: PROPHYLAXIS
     Dosage: 10 MG, UNK
     Route: 048
  24. DIART [Concomitant]
     Indication: RENAL FAILURE CHRONIC
     Dosage: UNK
     Route: 048
  25. ARTIST [Concomitant]
     Indication: HYPERTENSION
     Dosage: UNK
     Route: 048
  26. PRECIPITATED CALCIUM CARBONATE [Concomitant]
     Indication: HYPERPHOSPHATAEMIA
     Dosage: UNK
     Route: 048
  27. BUFFERIN [Concomitant]
     Indication: PROPHYLAXIS
     Dosage: 81 MG, UNK
     Route: 048
  28. URSO [Concomitant]
     Indication: CHOLELITHIASIS
     Dosage: UNK
     Route: 048
  29. EPOGIN [Concomitant]
     Indication: NEPHROGENIC ANAEMIA
     Dosage: UNK
     Route: 065
  30. GULUCOLIN S [Concomitant]
     Indication: PRURITUS
     Dosage: UNK
     Route: 042
  31. BAYASPIRIN [Concomitant]
     Indication: PROPHYLAXIS
     Dosage: 100 MG, UNK
     Route: 048
  32. WARFARIN [Concomitant]
     Indication: PROPHYLAXIS
     Dosage: 2.5 MG, UNK
     Route: 048
  33. NOVASTAN [Concomitant]
     Indication: RENAL FAILURE CHRONIC
     Dosage: 65 MG, UNK
     Route: 065
  34. NOVASTAN [Concomitant]
     Indication: HEPARIN-INDUCED THROMBOCYTOPENIA
  35. ROCEPHIN [Concomitant]
     Indication: BRONCHITIS
     Dosage: 1 G, UNK
     Route: 042
  36. ROCEPHIN [Concomitant]
     Indication: BRONCHITIS
  37. ZITHROMAC [Concomitant]
     Indication: BRONCHITIS
     Dosage: 500 MG, UNK
     Route: 065
  38. ZITHROMAC [Concomitant]
     Indication: BRONCHITIS
  39. KAYEXALATE [Concomitant]
     Indication: HYPERKALAEMIA
     Dosage: 6.54 G, UNK
     Route: 048
  40. CARTIN                             /00878601/ [Concomitant]
     Indication: CARNITINE DEFICIENCY
     Dosage: UNK
     Route: 048
  41. ROCALTROL [Concomitant]
     Indication: HYPERPARATHYROIDISM SECONDARY
     Dosage: 0.25 MUG, UNK
     Route: 065
  42. ROCALTROL [Concomitant]
     Dosage: 0.25 MUG, UNK
  43. L-CARTIN [Concomitant]
     Indication: CARNITINE DEFICIENCY
     Dosage: UNK
     Route: 048
  44. EPOGEN [Concomitant]
     Indication: NEPHROGENIC ANAEMIA
     Dosage: UNK
     Route: 065

REACTIONS (2)
  - Cerebral haemorrhage [Fatal]
  - Hepatic function abnormal [Recovering/Resolving]
